FAERS Safety Report 17494852 (Version 1)
Quarter: 2020Q1

REPORT INFORMATION
  Report Type: Spontaneous
  Country: US (occurrence: US)
  Receive Date: 20200303
  Receipt Date: 20200303
  Transmission Date: 20200409
  Serious: No
  Sender: FDA-Public Use
  Company Number: US-AMNEAL PHARMACEUTICALS-2019-AMRX-02628

PATIENT
  Age: 67 Year
  Sex: Female
  Weight: 68 kg

DRUGS (6)
  1. POTASSIUM [Concomitant]
     Active Substance: POTASSIUM
     Indication: PRODUCT USED FOR UNKNOWN INDICATION
     Dosage: 2 CAPSULES, 2 /DAY
     Route: 065
     Dates: start: 2017
  2. RYTARY [Suspect]
     Active Substance: CARBIDOPA\LEVODOPA
     Dosage: 61.25MG/245 MG, 1 CAPSULES, 4 /DAY
     Route: 048
     Dates: start: 20191106
  3. ATENOLOL. [Concomitant]
     Active Substance: ATENOLOL
     Indication: BLOOD PRESSURE ABNORMAL
     Dosage: 25 MILLIGRAM, 1 /DAY
     Route: 065
     Dates: start: 1986
  4. RYTARY [Suspect]
     Active Substance: CARBIDOPA\LEVODOPA
     Indication: PARKINSON^S DISEASE
     Dosage: UNK (48.75MG/195MG)
     Route: 048
     Dates: start: 20191031, end: 20191106
  5. PRAMIPEXOLE. [Concomitant]
     Active Substance: PRAMIPEXOLE
     Indication: PARKINSON^S DISEASE
     Dosage: 0.5 MILLIGRAM, TID
     Route: 065
     Dates: start: 2015
  6. PANTOPRAZOLE [Concomitant]
     Active Substance: PANTOPRAZOLE
     Indication: GASTROOESOPHAGEAL REFLUX DISEASE
     Dosage: UNK
     Route: 065
     Dates: start: 2017

REACTIONS (3)
  - Therapeutic response shortened [Unknown]
  - Somnolence [Unknown]
  - Tremor [Unknown]

NARRATIVE: CASE EVENT DATE: 20191031
